FAERS Safety Report 10250034 (Version 1)
Quarter: 2014Q2

REPORT INFORMATION
  Report Type: Spontaneous
  Country: US (occurrence: US)
  Receive Date: 20140620
  Receipt Date: 20140620
  Transmission Date: 20141212
  Serious: No
  Sender: FDA-Public Use
  Company Number: US-BRISTOL-MYERS SQUIBB COMPANY-20592812

PATIENT
  Age: 73 Year
  Sex: Female

DRUGS (14)
  1. ELIQUIS [Suspect]
  2. NORVASC [Concomitant]
  3. EVISTA [Concomitant]
  4. ATENOLOL [Concomitant]
  5. NEXIUM [Concomitant]
  6. PAXIL [Concomitant]
     Dosage: I TAKE 30MG, I CUT ONE IN HALF
  7. NEURONTIN [Concomitant]
     Dosage: 1 DF:600-900MG
  8. IRON [Concomitant]
  9. CALCIUM [Concomitant]
  10. CITRACAL [Concomitant]
  11. VITAMINS [Concomitant]
     Dosage: STRESS FORMULA VITAMINS
  12. VITAMIN B12 [Concomitant]
     Dosage: 1 DF:250 UNITS NOS
  13. LACTAID [Concomitant]
  14. CITRUCEL [Concomitant]
     Dosage: CITRUCEL FIBER

REACTIONS (5)
  - Eczema nummular [Unknown]
  - Oedema peripheral [Unknown]
  - Blood creatinine increased [Unknown]
  - Protein total increased [Unknown]
  - Dermatitis atopic [Unknown]
